FAERS Safety Report 25875932 (Version 1)
Quarter: 2025Q4

REPORT INFORMATION
  Report Type: Report from Study
  Country: US (occurrence: US)
  Receive Date: 20251003
  Receipt Date: 20251003
  Transmission Date: 20260118
  Serious: Yes (Other)
  Sender: CSL BEHRING
  Company Number: US-BEH-2025219747

PATIENT
  Age: 39 Year
  Sex: Female
  Weight: 58.97 kg

DRUGS (2)
  1. HIZENTRA [Suspect]
     Active Substance: HUMAN IMMUNOGLOBULIN G
     Indication: Immunodeficiency common variable
     Dosage: 10 G, BIW
     Route: 058
  2. ENTYVIO [Concomitant]
     Active Substance: VEDOLIZUMAB
     Dosage: UNK
     Dates: start: 2018

REACTIONS (4)
  - Encephalitis viral [Recovering/Resolving]
  - Infusion site discharge [Recovering/Resolving]
  - Infusion site discomfort [Recovering/Resolving]
  - Infusion site scar [Recovering/Resolving]
